FAERS Safety Report 9287919 (Version 3)
Quarter: 2013Q2

REPORT INFORMATION
  Report Type: Spontaneous
  Country: FR (occurrence: FR)
  Receive Date: 20130514
  Receipt Date: 20130617
  Transmission Date: 20140414
  Serious: Yes (Hospitalization)
  Sender: FDA-Public Use
  Company Number: FR-NOVOPROD-373569

PATIENT
  Age: 29 Year
  Sex: Male

DRUGS (23)
  1. NOVOSEVEN [Suspect]
     Indication: PROCEDURAL HAEMORRHAGE
     Dosage: 8 MG, QD
     Route: 042
     Dates: start: 20130304, end: 20130304
  2. KANOKAD [Suspect]
     Indication: PROCEDURAL HAEMORRHAGE
     Dosage: UNK
     Route: 065
     Dates: start: 20130304, end: 20130304
  3. KANOKAD [Suspect]
     Dosage: UNK
     Route: 065
     Dates: start: 20130305
  4. CLOTTAFACT [Suspect]
     Indication: PROCEDURAL HAEMORRHAGE
     Dosage: 7.5 MG, UNK
     Route: 042
     Dates: start: 20130304, end: 20130304
  5. CLOTTAFACT [Suspect]
     Dosage: 7.5 MG, UNK
     Route: 042
     Dates: start: 20130304, end: 20130304
  6. CLOTTAFACT [Suspect]
     Dosage: 7.5 MG, UNK
     Route: 042
     Dates: start: 20130304, end: 20130304
  7. CLOTTAFACT [Suspect]
     Dosage: UNK
     Route: 042
     Dates: start: 20130305
  8. CLOTTAFACT [Suspect]
     Dosage: UNK
     Route: 042
     Dates: start: 20130306
  9. EXACYL [Suspect]
     Indication: PROCEDURAL HAEMORRHAGE
     Dosage: 12 G, QD
     Route: 042
     Dates: start: 20130304, end: 20130304
  10. SUFENTANIL [Concomitant]
  11. PROPOFOL [Concomitant]
  12. NIMBEX                             /00845801/ [Concomitant]
  13. CEFAMANDOLE [Concomitant]
     Dosage: 6 G, UNK
  14. HEPARIN [Concomitant]
  15. PROTAMINE SULPHATE [Concomitant]
  16. EPHEDRINE [Concomitant]
     Dosage: 15 MG, UNK
  17. AMIODARONE [Concomitant]
     Dosage: 150 MG, UNK
  18. NORADRENALINE                      /00127501/ [Concomitant]
  19. CALCIUM CHLORIDE [Concomitant]
     Dosage: 4 G, UNK
  20. ADRENALINE                         /00003901/ [Concomitant]
  21. VOLUVEN                            /00375601/ [Concomitant]
  22. PLASMA [Concomitant]
  23. ALBUMIN [Concomitant]

REACTIONS (2)
  - Coronary bypass thrombosis [Recovered/Resolved]
  - Intrapericardial thrombosis [Recovered/Resolved]
